FAERS Safety Report 11495942 (Version 2)
Quarter: 2015Q3

REPORT INFORMATION
  Report Type: Spontaneous
  Country: JP (occurrence: JP)
  Receive Date: 20150911
  Receipt Date: 20150924
  Transmission Date: 20151125
  Serious: Yes (Hospitalization, Other)
  Sender: FDA-Public Use
  Company Number: JP-GLAXOSMITHKLINE-JP2015JPN122631

PATIENT
  Age: 78 Year
  Sex: Male

DRUGS (4)
  1. PREDONIN [Concomitant]
     Active Substance: PREDNISOLONE
     Dosage: 20 MG, BID
  2. VALTREX [Suspect]
     Active Substance: VALACYCLOVIR HYDROCHLORIDE
     Indication: VIITH NERVE PARALYSIS
     Dosage: 500 MG, QOD
     Route: 048
  3. FAMOTIDINE. [Concomitant]
     Active Substance: FAMOTIDINE
     Dosage: 40 MG, BID
  4. RETICOLAN [Concomitant]
     Active Substance: METHYLCOBALAMIN
     Dosage: 1000 MG, BID

REACTIONS (4)
  - Toxic encephalopathy [Not Recovered/Not Resolved]
  - Confusional state [Recovered/Resolved]
  - Hypoaesthesia oral [Unknown]
  - Cerebral infarction [Unknown]

NARRATIVE: CASE EVENT DATE: 20150819
